FAERS Safety Report 24936000 (Version 1)
Quarter: 2025Q1

REPORT INFORMATION
  Report Type: Spontaneous
  Country: US (occurrence: None)
  Receive Date: 20250205
  Receipt Date: 20250205
  Transmission Date: 20250409
  Serious: No
  Sender: FDA-CTU
  Company Number: None

PATIENT
  Age: 45 Year
  Sex: Female

DRUGS (5)
  1. ADBRY [Suspect]
     Active Substance: TRALOKINUMAB-LDRM
     Indication: Dermatitis atopic
     Dosage: FREQUENCY : DAILY;?
     Route: 058
     Dates: start: 20250120, end: 20250201
  2. NORTRIPTYLINE [Concomitant]
     Active Substance: NORTRIPTYLINE
  3. TAMOXIFEN [Concomitant]
     Active Substance: TAMOXIFEN
  4. EUCRISA 2% OINTMENT [Concomitant]
  5. ADULT MULTIVITAMIN [Concomitant]

REACTIONS (4)
  - Hypersensitivity [None]
  - Rash [None]
  - Rash papular [None]
  - Rash [None]

NARRATIVE: CASE EVENT DATE: 20250127
